FAERS Safety Report 9197206 (Version 5)
Quarter: 2015Q4

REPORT INFORMATION
  Report Type: Report from Study
  Country: BR (occurrence: BR)
  Receive Date: 20130328
  Receipt Date: 20151102
  Transmission Date: 20160305
  Serious: Yes (Hospitalization, Other)
  Sender: FDA-Public Use
  Company Number: BR-ROCHE-1207635

PATIENT
  Sex: Female
  Weight: 58 kg

DRUGS (4)
  1. MABTHERA [Suspect]
     Active Substance: RITUXIMAB
     Indication: RHEUMATOID ARTHRITIS
     Dosage: THE MOST RECENT INFUSION OF THIS MEDICATION WAS PERFORMED ON 18-JUN-2013.
     Route: 042
     Dates: start: 20121001
  2. PREDNISONE. [Concomitant]
     Active Substance: PREDNISONE
     Route: 065
  3. ATENOLOL. [Concomitant]
     Active Substance: ATENOLOL
  4. LOSARTAN. [Concomitant]
     Active Substance: LOSARTAN
     Indication: HYPERTENSION
     Route: 065

REACTIONS (8)
  - Musculoskeletal stiffness [Unknown]
  - Joint range of motion decreased [Unknown]
  - Spinal disorder [Unknown]
  - Hepatitis [Unknown]
  - Blood pressure increased [Unknown]
  - Formication [Unknown]
  - Arthropathy [Recovering/Resolving]
  - Back pain [Unknown]

NARRATIVE: CASE EVENT DATE: 2013
